FAERS Safety Report 5822358-9 (Version None)
Quarter: 2008Q3

REPORT INFORMATION
  Report Type: 
  Country: None (occurrence: None)
  Receive Date: 20080725
  Receipt Date: 20080716
  Transmission Date: 20090109
  Serious: Yes (Life-Threatening, Hospitalization)
  Sender: FDA-Public Use
  Company Number: IT-AMGEN-UK291187

PATIENT
  Sex: Female

DRUGS (10)
  1. NEUPOGEN [Suspect]
     Indication: BONE MARROW TRANSPLANT
     Route: 058
     Dates: start: 20070929, end: 20071109
  2. CARMUSTINE [Concomitant]
  3. ETOPOSIDE [Concomitant]
  4. ARA-C [Concomitant]
  5. MELPHALAN [Concomitant]
  6. ANTITHROMBIN III [Concomitant]
     Dates: start: 20071005, end: 20071009
  7. CORDARONE [Concomitant]
     Dates: start: 20071004, end: 20071101
  8. ATENOLOL [Concomitant]
     Dates: start: 20071007, end: 20071119
  9. RETINOL [Concomitant]
     Dates: start: 20071020, end: 20071107
  10. LEVOFLOXACIN [Concomitant]
     Dates: start: 20071031, end: 20071115

REACTIONS (5)
  - ATRIAL FIBRILLATION [None]
  - JAUNDICE [None]
  - NEUTROPENIA [None]
  - SEPTIC SHOCK [None]
  - THROMBOCYTOPENIA [None]
